FAERS Safety Report 4934085-0 (Version None)
Quarter: 2006Q1

REPORT INFORMATION
  Report Type: 
  Country: None (occurrence: None)
  Receive Date: 20060307
  Receipt Date: 20060224
  Transmission Date: 20060701
  Serious: Yes (Hospitalization, Other)
  Sender: FDA-Public Use
  Company Number: PHHO2006JP03750

PATIENT
  Age: 85 Year
  Sex: Male
  Weight: 56 kg

DRUGS (5)
  1. DIOVAN [Suspect]
     Indication: HYPERTENSION
     Dosage: 80 MG / DAY
     Route: 048
     Dates: start: 20021207
  2. NORVASC [Concomitant]
  3. EPADEL [Concomitant]
  4. MECOBALAMIN [Concomitant]
  5. SPIRONOLACTONE [Concomitant]

REACTIONS (4)
  - AORTIC ANEURYSM [None]
  - AORTIC ANEURYSM REPAIR [None]
  - ARTERIOVENOUS GRAFT [None]
  - POLLAKIURIA [None]
